FAERS Safety Report 10414042 (Version 2)
Quarter: 2014Q3

REPORT INFORMATION
  Report Type: Spontaneous
  Country: FR (occurrence: None)
  Receive Date: 20140826
  Receipt Date: 20140918
  Transmission Date: 20150326
  Serious: Yes (Death, Hospitalization)
  Sender: FDA-Public Use
  Company Number: 2492282

PATIENT
  Age: 66 Year
  Sex: Male

DRUGS (3)
  1. DEXAMETHASONE. [Suspect]
     Active Substance: DEXAMETHASONE
     Indication: ACUTE LYMPHOCYTIC LEUKAEMIA
     Route: 048
     Dates: start: 20131023, end: 20131024
  2. VINCRISTINE SULFATE. [Suspect]
     Active Substance: VINCRISTINE SULFATE
     Indication: ACUTE LYMPHOCYTIC LEUKAEMIA
     Dates: start: 20131023, end: 20131024
  3. DOXORUBICINE ACCORD [Suspect]
     Active Substance: DOXORUBICIN
     Indication: ACUTE LYMPHOCYTIC LEUKAEMIA
     Dates: start: 20131023, end: 20131024

REACTIONS (6)
  - Cardio-respiratory distress [None]
  - Acute coronary syndrome [None]
  - Cardiogenic shock [None]
  - Troponin increased [None]
  - Tumour lysis syndrome [None]
  - Metabolic acidosis [None]

NARRATIVE: CASE EVENT DATE: 20131024
